FAERS Safety Report 24982544 (Version 3)
Quarter: 2025Q4

REPORT INFORMATION
  Report Type: Spontaneous
  Country: US (occurrence: US)
  Receive Date: 20250218
  Receipt Date: 20251103
  Transmission Date: 20260117
  Serious: No
  Sender: PFIZER
  Company Number: US-PFIZER INC-PV202300197775

PATIENT
  Age: 67 Year
  Sex: Female
  Weight: 136.08 kg

DRUGS (1)
  1. IBRANCE [Suspect]
     Active Substance: PALBOCICLIB
     Indication: Breast cancer female
     Dosage: 75 MG, CYCLIC [TAKE 1 TABLET, ONCE A DAY ON DAYS 1 TO 21 OF EACH 35-DAY CYCLE (HELD FOR 22-35)]
     Route: 048
     Dates: start: 20220311

REACTIONS (3)
  - COVID-19 [Recovering/Resolving]
  - Off label use [Unknown]
  - Product use issue [Unknown]

NARRATIVE: CASE EVENT DATE: 20220311
